FAERS Safety Report 4370025-3 (Version None)
Quarter: 2004Q2

REPORT INFORMATION
  Report Type: 
  Country: None (occurrence: None)
  Receive Date: 20040526
  Receipt Date: 20031229
  Transmission Date: 20050107
  Serious: Yes (Life-Threatening)
  Sender: FDA-Public Use
  Company Number: USA031254914

PATIENT
  Age: 44 Year
  Sex: Male
  Weight: 127 kg

DRUGS (2)
  1. ZYPREXA [Suspect]
     Indication: PSYCHOTIC DISORDER
     Dosage: 10 MG/2 DAY
     Dates: start: 20030924, end: 20031216
  2. DYAZIDE [Concomitant]

REACTIONS (5)
  - BLOOD UREA INCREASED [None]
  - HYPERGLYCAEMIA [None]
  - POLYDIPSIA [None]
  - POLYURIA [None]
  - WEIGHT INCREASED [None]
